FAERS Safety Report 8140570-3 (Version None)
Quarter: 2012Q1

REPORT INFORMATION
  Report Type: 
  Country: None (occurrence: None)
  Receive Date: 20120216
  Receipt Date: 20120209
  Transmission Date: 20120608
  Serious: Yes (Hospitalization, Other)
  Sender: FDA-Public Use
  Company Number: JP-PFIZER INC-2012015788

PATIENT
  Age: 32 Year
  Sex: Male

DRUGS (5)
  1. PREDNISOLONE [Concomitant]
     Dosage: UNK
     Route: 048
     Dates: start: 20050101
  2. CELECOXIB [Suspect]
     Indication: ARTHRITIS
     Dosage: 400 MG, 1X/DAY
     Route: 048
     Dates: start: 20111004, end: 20111018
  3. RISEDRONATE SODIUM [Concomitant]
     Dosage: UNK
     Route: 048
  4. FAMOTIDINE [Concomitant]
     Dosage: 20 MG, UNK
     Dates: start: 20050101
  5. CELECOXIB [Suspect]
     Dosage: UNK
     Route: 048
     Dates: start: 20111024, end: 20111024

REACTIONS (2)
  - DRUG ERUPTION [None]
  - ANAPHYLACTIC SHOCK [None]
